FAERS Safety Report 4967796-1 (Version None)
Quarter: 2006Q2

REPORT INFORMATION
  Report Type: 
  Country: None (occurrence: None)
  Receive Date: 20060410
  Receipt Date: 20050315
  Transmission Date: 20061013
  Serious: Yes (Disabling, Other)
  Sender: FDA-Public Use
  Company Number: US-MERCK-0503USA03232

PATIENT
  Age: 41 Year
  Sex: Female
  Weight: 68 kg

DRUGS (4)
  1. VIOXX [Suspect]
     Indication: ARTHRALGIA
     Route: 048
     Dates: start: 20010101, end: 20040101
  2. VIOXX [Suspect]
     Route: 048
     Dates: start: 20010101, end: 20040101
  3. CELEBREX [Concomitant]
     Route: 065
  4. IBUPROFEN [Concomitant]
     Route: 065

REACTIONS (4)
  - BACK DISORDER [None]
  - CHEST PAIN [None]
  - MYOCARDIAL INFARCTION [None]
  - POLYTRAUMATISM [None]
